FAERS Safety Report 24991785 (Version 2)
Quarter: 2025Q1

REPORT INFORMATION
  Report Type: Spontaneous
  Country: US (occurrence: US)
  Receive Date: 20250220
  Receipt Date: 20250307
  Transmission Date: 20250408
  Serious: Yes (Hospitalization)
  Sender: TEVA
  Company Number: US-TEVA-VS-3298329

PATIENT
  Age: 50 Year
  Sex: Female

DRUGS (7)
  1. DIAZOXIDE [Suspect]
     Active Substance: DIAZOXIDE
     Indication: Hyperinsulinaemic hypoglycaemia
     Route: 065
  2. EVEROLIMUS [Suspect]
     Active Substance: EVEROLIMUS
     Indication: Pancreatic neuroendocrine tumour metastatic
     Route: 065
  3. DEXAMETHASONE [Suspect]
     Active Substance: DEXAMETHASONE
     Indication: Hyperinsulinaemic hypoglycaemia
     Route: 065
  4. DEXAMETHASONE [Suspect]
     Active Substance: DEXAMETHASONE
     Indication: Hyperinsulinaemic hypoglycaemia
     Dosage: HIGH-DOSE DEXAMETHASONE
     Route: 065
  5. DEXTROSE [Suspect]
     Active Substance: DEXTROSE MONOHYDRATE
     Indication: Hyperinsulinaemic hypoglycaemia
     Route: 048
  6. OCTREOTIDE [Suspect]
     Active Substance: OCTREOTIDE
     Indication: Hyperinsulinaemic hypoglycaemia
     Route: 065
  7. LANREOTIDE [Suspect]
     Active Substance: LANREOTIDE
     Indication: Pancreatic neuroendocrine tumour metastatic
     Route: 065

REACTIONS (5)
  - Drug ineffective [Unknown]
  - Off label use [Unknown]
  - Cushingoid [Unknown]
  - Weight increased [Unknown]
  - Hypervolaemia [Unknown]
